FAERS Safety Report 8696409 (Version 2)
Quarter: 2012Q4

REPORT INFORMATION
  Report Type: 
  Country: US (occurrence: US)
  Receive Date: 20120801
  Receipt Date: 20121004
  Transmission Date: 20130627
  Serious: Yes (Hospitalization, Other)
  Sender: FDA-Public Use
  Company Number: PHEH2012US011718

PATIENT
  Age: 75 Year
  Sex: Female
  Weight: 68.03 kg

DRUGS (17)
  1. EXJADE [Suspect]
     Indication: IRON OVERLOAD
     Dosage: 500 mg, QD
     Route: 048
     Dates: start: 201205
  2. EXJADE [Suspect]
     Indication: ANAEMIA HAEMOLYTIC AUTOIMMUNE
  3. CELEBREX [Concomitant]
     Dosage: 100 mg, UNK
  4. CELEBREX [Concomitant]
     Dosage: 200 mg, daily
     Route: 048
  5. KLONOPIN [Concomitant]
     Dosage: 0.5 mg, QHS
     Route: 048
  6. ASPIRIN [Concomitant]
     Dosage: 81 mg, daily
     Route: 048
  7. POTASSIUM [Concomitant]
     Dosage: 75 mg, UNK
  8. POTASSIUM [Concomitant]
     Dosage: 10 MEq, daily
     Route: 048
  9. HYDROCHLOROTHIAZIDE W/TRIAMTERENE [Concomitant]
     Dosage: 1 DF (25-50 mg)
  10. CALCIUM WITH VITAMIN D [Concomitant]
  11. ICAPS PLUS [Concomitant]
     Indication: IRON OVERLOAD
     Dosage: 1 DF, daily
  12. PREDNISONE [Concomitant]
     Route: 048
  13. FOLIC ACID [Concomitant]
     Dosage: 1 mg, daily
     Route: 048
  14. CALCIUM CARBONATE [Concomitant]
     Dosage: 600 mg, daily
     Route: 048
  15. HYDROCHLOROTHIAZIDE [Concomitant]
     Dosage: 12.5 mg, daily
     Route: 048
  16. H2 BLOCKER [Concomitant]
     Route: 048
  17. RITUXAN [Concomitant]

REACTIONS (19)
  - Atrial fibrillation [Recovered/Resolved]
  - Anaemia [Unknown]
  - Hairy cell leukaemia [Unknown]
  - Palpitations [Unknown]
  - Protein total decreased [Unknown]
  - Globulins decreased [Unknown]
  - Heart rate increased [Recovered/Resolved]
  - Tachycardia [Unknown]
  - Dyspnoea [Unknown]
  - White blood cell count decreased [Unknown]
  - Blood lactate dehydrogenase increased [Unknown]
  - Dyslipidaemia [Unknown]
  - Muscle tightness [Unknown]
  - Diarrhoea [Unknown]
  - Dizziness [Recovered/Resolved]
  - Red blood cell count decreased [Unknown]
  - Haemoglobin decreased [Recovered/Resolved]
  - Haematocrit decreased [Unknown]
  - Blood bilirubin increased [Unknown]
